FAERS Safety Report 6378711-0 (Version None)
Quarter: 2009Q3

REPORT INFORMATION
  Report Type: 
  Country: None (occurrence: None)
  Receive Date: 20090928
  Receipt Date: 20090921
  Transmission Date: 20100115
  Serious: Yes (Death)
  Sender: FDA-Public Use
  Company Number: GB-ROCHE-658293

PATIENT
  Age: 59 Year

DRUGS (14)
  1. MYCOPHENOLATE MOFETIL [Suspect]
     Indication: IMMUNOSUPPRESSION
     Dosage: MEAN DAILY DOSE: 0.5 TO 3 GM THERAPY STOPPED IN 16 PATIENTS
     Route: 065
  2. RITUXIMAB [Suspect]
     Indication: ANTI-NEUTROPHIL CYTOPLASMIC ANTIBODY POSITIVE VASCULITIS
     Route: 065
  3. AZATHIOPRINE [Suspect]
     Indication: IMMUNOSUPPRESSION
     Dosage: RANGE OF DAILY DOSE: 12.5 TO 150 MG/ DAY STOPPED IN 2 PATIENTS
     Route: 065
  4. MYCOPHENOLATE SODIUM [Suspect]
     Indication: IMMUNOSUPPRESSION
     Route: 065
  5. DEOXYSPERGUALIN HCL [Suspect]
     Indication: IMMUNOSUPPRESSION
     Route: 065
  6. CYCLOPHOSPHAMIDE [Suspect]
     Indication: IMMUNOSUPPRESSION
     Dosage: RANGE OF DAILY DOSE: 0.2 TO 1.85 GM.
     Route: 042
  7. METHOTREXATE [Suspect]
     Indication: IMMUNOSUPPRESSION
     Dosage: RANGE OF DAILY DOSE: 17.5-25 MG/DAY
     Route: 065
  8. CAMPATH [Suspect]
     Indication: IMMUNOSUPPRESSION
     Dosage: STARTED 11 MONTHS PRIOR RITUXIMAB THERAPY
     Route: 065
  9. CYCLOSPORINE [Suspect]
     Indication: IMMUNOSUPPRESSION
     Route: 065
  10. INFLIXIMAB [Suspect]
     Indication: IMMUNOSUPPRESSION
     Route: 065
  11. DAPSONE [Suspect]
     Indication: IMMUNOSUPPRESSION
     Route: 065
  12. IMMUNE GLOBULIN INTRAVENOUS (HUMAN) [Suspect]
     Indication: IMMUNOSUPPRESSION
     Route: 042
  13. ETANERCEPT [Suspect]
     Indication: IMMUNOSUPPRESSION
     Route: 065
  14. PREDNISOLONE [Suspect]
     Indication: IMMUNOSUPPRESSION
     Dosage: MEDIAN OF 12.5 MG/DAY (RANGE 0-60 MG/DAY)
     Route: 065

REACTIONS (1)
  - SUDDEN DEATH [None]
